FAERS Safety Report 12152843 (Version 1)
Quarter: 2016Q1

REPORT INFORMATION
  Report Type: Spontaneous
  Country: US (occurrence: US)
  Receive Date: 20160304
  Receipt Date: 20160304
  Transmission Date: 20160526
  Serious: Yes (Other)
  Sender: FDA-Public Use
  Company Number: US-JNJFOC-20160225270

PATIENT
  Age: 27 Year
  Sex: Female
  Weight: 68.04 kg

DRUGS (1)
  1. TYLENOL PM EXTRA STRENGTH [Suspect]
     Active Substance: ACETAMINOPHEN\DIPHENHYDRAMINE HYDROCHLORIDE
     Indication: HEADACHE
     Dosage: 2 CAPLETS 1X
     Route: 048
     Dates: start: 20160220, end: 20160220

REACTIONS (5)
  - Head injury [Recovering/Resolving]
  - Foot fracture [Recovering/Resolving]
  - Somnambulism [Recovering/Resolving]
  - Concussion [Recovering/Resolving]
  - Fall [Unknown]

NARRATIVE: CASE EVENT DATE: 20160220
